FAERS Safety Report 22599000 (Version 1)
Quarter: 2023Q2

REPORT INFORMATION
  Report Type: Spontaneous
  Country: US (occurrence: US)
  Receive Date: 20230614
  Receipt Date: 20230614
  Transmission Date: 20230721
  Serious: Yes (Other)
  Sender: FDA-Public Use
  Company Number: US-SA-2023SA176732

PATIENT
  Age: 12 Year
  Sex: Female

DRUGS (3)
  1. DIPHENHYDRAMINE [Interacting]
     Active Substance: DIPHENHYDRAMINE
     Indication: Rhinitis allergic
     Dosage: UNK, PRN
  2. OXYBUTYNIN CHLORIDE [Interacting]
     Active Substance: OXYBUTYNIN CHLORIDE
     Indication: Enuresis
  3. CETIRIZINE [Concomitant]
     Active Substance: CETIRIZINE HYDROCHLORIDE
     Indication: Rhinitis allergic
     Dosage: UNK UNK, PRN

REACTIONS (12)
  - Toxicity to various agents [Unknown]
  - Headache [Unknown]
  - Confusional state [Unknown]
  - Hallucination, visual [Unknown]
  - Hallucination, auditory [Unknown]
  - Vision blurred [Unknown]
  - Dry mouth [Unknown]
  - Vomiting [Unknown]
  - Drug interaction [Unknown]
  - Disorientation [Unknown]
  - Extra dose administered [Unknown]
  - Wrong technique in product usage process [Unknown]
